FAERS Safety Report 4774407-7 (Version None)
Quarter: 2005Q3

REPORT INFORMATION
  Report Type: 
  Country: None (occurrence: None)
  Receive Date: 20050919
  Receipt Date: 20050919
  Transmission Date: 20060218
  Serious: No
  Sender: FDA-Public Use
  Company Number: None

PATIENT

DRUGS (2)
  1. CIPRO IV [Suspect]
     Indication: BONE INFECTION
     Dosage: IV 400 MG
     Route: 042
  2. CIPRO IV [Suspect]
     Indication: FOOD POISONING
     Dosage: IV 400 MG
     Route: 042

REACTIONS (2)
  - INFUSION SITE ERYTHEMA [None]
  - INFUSION SITE PRURITUS [None]
